FAERS Safety Report 10744414 (Version 1)
Quarter: 2015Q1

REPORT INFORMATION
  Report Type: Spontaneous
  Country: ZA (occurrence: None)
  Receive Date: 20150126
  Receipt Date: 20150126
  Transmission Date: 20150721
  Serious: Yes (Other)
  Sender: FDA-Public Use
  Company Number: FK201500313

PATIENT
  Sex: Female

DRUGS (1)
  1. BUPIVACAINE (MANUFACTURER UNKNOWN) (BUPIVACAINE) (BUPIVACAINE) [Suspect]
     Active Substance: BUPIVACAINE
     Indication: EPIDURAL ANALGESIA
     Dosage: UNKNOWN , UNKNOWN , INTRAVENOUS (NOT OTHERWISE SPECIFIED)
     Route: 042

REACTIONS (5)
  - Drug administration error [None]
  - Toxicity to various agents [None]
  - Cardiac arrest [None]
  - Incorrect route of drug administration [None]
  - Generalised tonic-clonic seizure [None]
